FAERS Safety Report 9154048 (Version 2)
Quarter: 2013Q1

REPORT INFORMATION
  Report Type: Spontaneous
  Country: US (occurrence: None)
  Receive Date: 20130211
  Receipt Date: 20130221
  Transmission Date: 20140127
  Serious: Yes (Hospitalization, Other)
  Sender: FDA-Public Use
  Company Number: 2013SUN00052

PATIENT
  Age: 64 Year
  Sex: Female
  Weight: 81.4 kg

DRUGS (16)
  1. METFORMIN HCL [Suspect]
     Indication: TYPE 2 DIABETES MELLITUS
     Route: 048
     Dates: start: 20090521, end: 20100222
  2. ALOGLIPTIN BENZOATE [Suspect]
     Indication: TYPE 2 DIABETES MELLITUS
     Dates: start: 20090622, end: 20100223
  3. ETANERCEPT [Concomitant]
  4. ZESTORETIC [Concomitant]
  5. AMITRIPTYLINE [Concomitant]
  6. ATORVASTATIN (ATORVASTATIN) [Concomitant]
  7. ASPIRIN (ACETYLSALICYLIC ACID) [Concomitant]
  8. MULTIVITAMIN [Concomitant]
  9. FISH OIL [Concomitant]
  10. OMEPRAZOLE [Concomitant]
  11. NAPROXEN [Concomitant]
  12. ATENOLOL (ATENOLOL) [Concomitant]
  13. VICODIN [Concomitant]
  14. GABAPENTIN (GABAPENTIN) [Concomitant]
  15. ENBREL [Concomitant]
  16. METFORMIN [Concomitant]

REACTIONS (12)
  - Colitis [None]
  - Hyponatraemia [None]
  - Renal failure [None]
  - Dyspnoea [None]
  - Liver disorder [None]
  - Malaise [None]
  - Fatigue [None]
  - Hyperhidrosis [None]
  - Dizziness [None]
  - Abdominal pain [None]
  - Abdominal pain [None]
  - Diarrhoea haemorrhagic [None]
